FAERS Safety Report 5097096-3 (Version None)
Quarter: 2006Q3

REPORT INFORMATION
  Report Type: 
  Country: None (occurrence: None)
  Receive Date: 20060901
  Receipt Date: 20060815
  Transmission Date: 20061208
  Serious: Yes (Hospitalization)
  Sender: FDA-Public Use
  Company Number: US200608003611

PATIENT
  Age: 51 Year
  Sex: Male
  Weight: 78.9 kg

DRUGS (1)
  1. ZYPREXA [Suspect]
     Indication: DEPRESSION
     Dosage: 10 MG
     Dates: start: 19980701, end: 20040301

REACTIONS (5)
  - BLOOD CHOLESTEROL ABNORMAL [None]
  - BLOOD TRIGLYCERIDES INCREASED [None]
  - CORONARY ARTERIAL STENT INSERTION [None]
  - DIABETES MELLITUS [None]
  - INSULIN RESISTANCE [None]
